FAERS Safety Report 8087046-X (Version None)
Quarter: 2012Q1

REPORT INFORMATION
  Report Type: 
  Country: None (occurrence: None)
  Receive Date: 20120128
  Receipt Date: 20110615
  Transmission Date: 20120608
  Serious: No
  Sender: FDA-Public Use
  Company Number: US-ABBOTT-11P-163-0732937-00

PATIENT
  Age: 47 Year
  Sex: Female

DRUGS (14)
  1. VITAMIN D [Concomitant]
     Indication: PRODUCT USED FOR UNKNOWN INDICATION
  2. IRON [Concomitant]
     Indication: ANAEMIA
     Route: 042
  3. AMITRIPTYLINE HCL [Concomitant]
     Indication: INSOMNIA
     Dosage: AT BEDTIME
  4. M.V.I. [Concomitant]
     Indication: PRODUCT USED FOR UNKNOWN INDICATION
  5. GLUCOSAMINE [Concomitant]
     Indication: OSTEOARTHRITIS
  6. CELEXA [Concomitant]
     Indication: DEPRESSION
  7. SYNTHROID [Concomitant]
     Indication: HYPOTHYROIDISM
  8. METFFORMIN HYDROCHLORIDE [Concomitant]
     Indication: POLYCYSTIC OVARIES
  9. ASPIRIN [Concomitant]
     Indication: CARDIOVASCULAR EVENT PROPHYLAXIS
  10. HUMIRA [Suspect]
     Indication: PSORIASIS
     Dates: start: 20110516
  11. WELLBUTRIN [Concomitant]
     Indication: DEPRESSION
  12. ATENOLOL [Concomitant]
     Indication: HEART RATE INCREASED
  13. ATENOLOL [Concomitant]
     Indication: VENTRICULAR EXTRASYSTOLES
  14. VITAMIN B COMPLEX CAP [Concomitant]
     Indication: PRODUCT USED FOR UNKNOWN INDICATION

REACTIONS (3)
  - DRUG DOSE OMISSION [None]
  - INJECTION SITE PAIN [None]
  - WRONG TECHNIQUE IN DRUG USAGE PROCESS [None]
